FAERS Safety Report 20577816 (Version 2)
Quarter: 2022Q1

REPORT INFORMATION
  Report Type: Spontaneous
  Country: US (occurrence: US)
  Receive Date: 20220310
  Receipt Date: 20220324
  Transmission Date: 20220424
  Serious: Yes (Life-Threatening, Hospitalization)
  Sender: FDA-Public Use
  Company Number: US-TEVA-2022-US-2014100

PATIENT
  Age: 21 Year
  Sex: Male

DRUGS (3)
  1. ADENOSINE [Suspect]
     Active Substance: ADENOSINE
     Indication: Wolff-Parkinson-White syndrome
     Dosage: 12 MG
     Route: 040
  2. PROCAINAMIDE HYDROCHLORIDE [Suspect]
     Active Substance: PROCAINAMIDE HYDROCHLORIDE
     Indication: Wolff-Parkinson-White syndrome
     Dosage: 100 MG, TWO SEPARATE BOLUSES
     Route: 040
  3. PROCAINAMIDE HYDROCHLORIDE [Suspect]
     Active Substance: PROCAINAMIDE HYDROCHLORIDE
     Dosage: CONTINUOUS INFUSION
     Route: 041

REACTIONS (1)
  - Drug ineffective [Unknown]
